FAERS Safety Report 8089062-0 (Version None)
Quarter: 2012Q1

REPORT INFORMATION
  Report Type: 
  Country: None (occurrence: None)
  Receive Date: 20120128
  Receipt Date: 20110718
  Transmission Date: 20120608
  Serious: Yes (Other)
  Sender: FDA-Public Use
  Company Number: US-ABBOTT-11P-163-0707638-00

PATIENT
  Sex: Female
  Weight: 66.284 kg

DRUGS (15)
  1. ASPIRIN [Concomitant]
     Indication: PRODUCT USED FOR UNKNOWN INDICATION
  2. AMLODIPINE [Concomitant]
     Indication: HYPERTENSION
     Route: 048
  3. MULTIVITAMIN [Concomitant]
     Indication: PRODUCT USED FOR UNKNOWN INDICATION
  4. LOVAZA [Concomitant]
     Indication: PRODUCT USED FOR UNKNOWN INDICATION
  5. LEVOTHYROXINE SODIUM [Concomitant]
     Indication: THYROID DISORDER
     Route: 048
  6. WELLBUTRIN SR [Concomitant]
     Indication: DEPRESSION
  7. HUMIRA [Suspect]
     Indication: RHEUMATOID ARTHRITIS
     Dates: start: 20030101
  8. ETODOLAC [Concomitant]
     Indication: PRODUCT USED FOR UNKNOWN INDICATION
     Route: 048
  9. ZOLOFT [Concomitant]
     Indication: DEPRESSION
     Route: 048
  10. HUMIRA [Suspect]
  11. METOPROLOL TARTRATE [Concomitant]
     Indication: HYPERTENSION
     Dates: start: 20100701
  12. LAMICTAL [Concomitant]
     Indication: BIPOLAR DISORDER
  13. ALPRAZOLAM [Concomitant]
     Indication: PRODUCT USED FOR UNKNOWN INDICATION
     Route: 048
  14. PRAVASTATIN [Concomitant]
     Indication: BLOOD CHOLESTEROL INCREASED
  15. HUMIRA [Suspect]

REACTIONS (13)
  - ANKLE FRACTURE [None]
  - GAIT DISTURBANCE [None]
  - TOOTH REPAIR [None]
  - FALL [None]
  - PAIN IN EXTREMITY [None]
  - AORTIC ANEURYSM [None]
  - FATIGUE [None]
  - NEUROPATHY PERIPHERAL [None]
  - PYREXIA [None]
  - SOMNOLENCE [None]
  - TOOTH EXTRACTION [None]
  - ESSENTIAL TREMOR [None]
  - PERITONSILLAR ABSCESS [None]
